FAERS Safety Report 20317848 (Version 1)
Quarter: 2022Q1

REPORT INFORMATION
  Report Type: Spontaneous
  Country: GB (occurrence: None)
  Receive Date: 20220108
  Receipt Date: 20220108
  Transmission Date: 20220423
  Serious: No
  Sender: FDA-Public Use
  Company Number: None

PATIENT
  Age: 66 Year
  Sex: Female
  Weight: 62 kg

DRUGS (11)
  1. VAGIFEM [Suspect]
     Active Substance: ESTRADIOL
     Indication: Bladder prolapse
     Dosage: FREQUENCY : AT BEDTIME;?
     Route: 067
  2. VAGIFEM [Suspect]
     Active Substance: ESTRADIOL
     Indication: Urge incontinence
  3. KEGEL 8 [Concomitant]
  4. NAPROXEN [Concomitant]
     Active Substance: NAPROXEN
  5. PATACETAMOL [Concomitant]
  6. OMEPRAZOLE [Concomitant]
     Active Substance: OMEPRAZOLE
  7. VITAMIN D3 [Concomitant]
     Active Substance: CHOLECALCIFEROL
  8. VITAMIN D3 [Concomitant]
     Active Substance: CHOLECALCIFEROL
  9. VITAMIN C [Concomitant]
     Active Substance: ASCORBIC ACID
  10. SELENIUM [Concomitant]
     Active Substance: SELENIUM
  11. DIETARY SUPPLEMENT\UBIDECARENONE [Concomitant]
     Active Substance: DIETARY SUPPLEMENT\UBIDECARENONE

REACTIONS (2)
  - Headache [None]
  - Application site pruritus [None]

NARRATIVE: CASE EVENT DATE: 20121220
